FAERS Safety Report 15857921 (Version 2)
Quarter: 2019Q1

REPORT INFORMATION
  Report Type: Spontaneous
  Country: JP (occurrence: JP)
  Receive Date: 20190123
  Receipt Date: 20190312
  Transmission Date: 20190417
  Serious: Yes (Death, Hospitalization)
  Sender: FDA-Public Use
  Company Number: JP-PFIZER INC-2019026305

PATIENT
  Age: 57 Year
  Sex: Male
  Weight: 65 kg

DRUGS (7)
  1. ACMAIN [Concomitant]
     Dosage: UNK
     Dates: start: 20180912
  2. BFLUID [Concomitant]
     Active Substance: AMINO ACIDS\DEXTROSE\ELECTROLYTES NOS\VITAMINS
     Dosage: UNK
     Dates: start: 20180929
  3. VITACIMIN [Concomitant]
     Dosage: UNK
     Dates: start: 20180912
  4. FAMOTIDINE. [Concomitant]
     Active Substance: FAMOTIDINE
     Dosage: UNK
     Route: 042
     Dates: start: 20181020
  5. VITAMEDIN [CYANOCOBALAMIN;PYRIDOXINE HYDROCHLORIDE;THIAMINE HYDROCHLOR [Concomitant]
     Dosage: UNK
     Route: 042
     Dates: start: 20180912
  6. ANAEMETRO 500MG [Suspect]
     Active Substance: METRONIDAZOLE
     Indication: CLOSTRIDIUM TEST POSITIVE
     Dosage: 500 MG, 3X/DAY
     Route: 041
     Dates: start: 20181025, end: 20181102
  7. PANTOSIN [Concomitant]
     Active Substance: PANTETHINE
     Dosage: UNK
     Dates: start: 20181023

REACTIONS (4)
  - Drug-induced liver injury [Recovered/Resolved]
  - Multiple organ dysfunction syndrome [Fatal]
  - Aspartate aminotransferase increased [Recovered/Resolved]
  - Alanine aminotransferase increased [Recovered/Resolved]

NARRATIVE: CASE EVENT DATE: 20181102
